FAERS Safety Report 23322677 (Version 3)
Quarter: 2024Q1

REPORT INFORMATION
  Report Type: Spontaneous
  Country: US (occurrence: US)
  Receive Date: 20231220
  Receipt Date: 20240202
  Transmission Date: 20240409
  Serious: Yes (Hospitalization, Other)
  Sender: FDA-Public Use
  Company Number: US-Stemline Therapeutics, Inc.-2023ST005128

PATIENT
  Age: 60 Year
  Sex: Female

DRUGS (1)
  1. ORSERDU [Suspect]
     Active Substance: ELACESTRANT
     Indication: Product used for unknown indication
     Dosage: 345 MG, ORAL, ONCE A DAY
     Route: 048
     Dates: start: 20230901

REACTIONS (15)
  - Knee arthroplasty [Not Recovered/Not Resolved]
  - Dehydration [Unknown]
  - Bone cancer [Unknown]
  - Loss of consciousness [Unknown]
  - Dyspnoea [Unknown]
  - Product availability issue [Unknown]
  - Urinary tract infection [Unknown]
  - Rib fracture [Unknown]
  - Gait disturbance [Unknown]
  - Bone density decreased [Unknown]
  - Lethargy [Unknown]
  - Pallor [Unknown]
  - Insomnia [Unknown]
  - Back pain [Unknown]
  - Asthenia [Unknown]

NARRATIVE: CASE EVENT DATE: 20231201
